FAERS Safety Report 20883666 (Version 1)
Quarter: 2022Q2

REPORT INFORMATION
  Report Type: Spontaneous
  Country: JP (occurrence: JP)
  Receive Date: 20220527
  Receipt Date: 20220527
  Transmission Date: 20220721
  Serious: Yes (Hospitalization)
  Sender: FDA-Public Use
  Company Number: JP-GSKNCCC-Case-01496586_AE-58284

PATIENT

DRUGS (1)
  1. ATOVAQUONE [Suspect]
     Active Substance: ATOVAQUONE
     Dosage: UNK

REACTIONS (5)
  - Hospitalisation [Unknown]
  - Oral contusion [Unknown]
  - Product package associated injury [Unknown]
  - Cheilitis [Unknown]
  - Product packaging issue [Unknown]
